FAERS Safety Report 5983652-4 (Version None)
Quarter: 2008Q4

REPORT INFORMATION
  Report Type: 
  Country: None (occurrence: None)
  Receive Date: 20081208
  Receipt Date: 20081202
  Transmission Date: 20090506
  Serious: Yes (Other)
  Sender: FDA-Public Use
  Company Number: US-WYE-H07055508

PATIENT
  Age: 40 Year
  Sex: Female
  Weight: 90.8 kg

DRUGS (5)
  1. ROBITUSSIN COUGH AND CHEST CONGESTION DM MAX [Suspect]
     Indication: COUGH
     Dosage: 2 TEASPOONS X 1
     Route: 048
     Dates: start: 20081119, end: 20081119
  2. EFFEXOR [Concomitant]
     Dosage: UNKNOWN
     Route: 048
  3. BUSPAR [Concomitant]
     Dosage: UNKNOWN
     Route: 048
  4. LEVOXYL [Concomitant]
     Dosage: UNKNOWN
     Route: 048
  5. CALCITRIOL [Concomitant]
     Dosage: UNKNOWN
     Route: 065

REACTIONS (4)
  - HYPERSENSITIVITY [None]
  - OEDEMA PERIPHERAL [None]
  - SWELLING FACE [None]
  - URTICARIA [None]
